FAERS Safety Report 7825050-4 (Version None)
Quarter: 2011Q4

REPORT INFORMATION
  Report Type: 
  Country: None (occurrence: None)
  Receive Date: 20111019
  Receipt Date: 20110802
  Transmission Date: 20120403
  Serious: No
  Sender: FDA-Public Use
  Company Number: US-BRISTOL-MYERS SQUIBB COMPANY-15694623

PATIENT
  Age: 50 Year
  Sex: Female

DRUGS (1)
  1. AVALIDE [Suspect]
     Indication: HYPERTENSION
     Dosage: 0E62464A; EXP DATE:JUN2013 1DF:300/12.5MG BOTTLE
     Route: 048
     Dates: start: 20101001

REACTIONS (1)
  - HEADACHE [None]
